FAERS Safety Report 20882503 (Version 1)
Quarter: 2022Q2

REPORT INFORMATION
  Report Type: Spontaneous
  Country: FR (occurrence: FR)
  Receive Date: 20220527
  Receipt Date: 20220527
  Transmission Date: 20220721
  Serious: Yes (Hospitalization)
  Sender: FDA-Public Use
  Company Number: FR-SUN PHARMACEUTICAL INDUSTRIES LTD-2022RR-338447

PATIENT
  Age: 49 Year
  Sex: Female
  Weight: 101 kg

DRUGS (7)
  1. PANTOPRAZOLE [Suspect]
     Active Substance: PANTOPRAZOLE
     Indication: Product used for unknown indication
     Dosage: 40 MILLIGRAM, DAILY
     Route: 048
     Dates: start: 20200924, end: 202011
  2. CALCIPARINE [Suspect]
     Active Substance: HEPARIN CALCIUM
     Indication: Thrombosis prophylaxis
     Dosage: 0,2 ML X2/DAY
     Route: 058
     Dates: start: 20200918, end: 20200922
  3. CALCIPARINE [Suspect]
     Active Substance: HEPARIN CALCIUM
     Dosage: 0,2 ML X2/DAY
     Route: 058
     Dates: start: 20201022, end: 20201105
  4. VANCOMYCIN [Suspect]
     Active Substance: VANCOMYCIN
     Indication: Septic shock
     Dosage: 3 GRAM, DAILY
     Route: 042
     Dates: start: 20200927, end: 20201009
  5. VANCOMYCIN [Suspect]
     Active Substance: VANCOMYCIN
     Dosage: 30 MILLIGRAM/KILOGRAM, IN TOTAL
     Route: 042
     Dates: start: 20200917, end: 20200918
  6. VANCOMYCIN [Suspect]
     Active Substance: VANCOMYCIN
     Dosage: 1 GRAM, DAILY
     Route: 042
     Dates: start: 20201009, end: 20201027
  7. LOVENOX [Suspect]
     Active Substance: ENOXAPARIN SODIUM
     Indication: Thrombosis prophylaxis
     Dosage: 0,4 ML X2/DAY
     Route: 058
     Dates: start: 20200923, end: 20201022

REACTIONS (2)
  - Eosinophilia [Recovered/Resolved]
  - Erythema multiforme [Recovered/Resolved]

NARRATIVE: CASE EVENT DATE: 20200926
